FAERS Safety Report 13277199 (Version 9)
Quarter: 2017Q4

REPORT INFORMATION
  Report Type: Spontaneous
  Country: US (occurrence: US)
  Receive Date: 20170228
  Receipt Date: 20171115
  Transmission Date: 20180320
  Serious: Yes (Congenital Anomaly, Other)
  Sender: FDA-Public Use
  Company Number: PHEH2017US005987

PATIENT
  Sex: Female

DRUGS (2)
  1. ONDANSETRON HYDROCHLORIDE. [Suspect]
     Active Substance: ONDANSETRON HYDROCHLORIDE
     Indication: FOETAL EXPOSURE DURING PREGNANCY
     Dosage: MOTHER^S DOSE: 04 MG, PRN
     Route: 064
  2. ZOFRAN [Suspect]
     Active Substance: ONDANSETRON HYDROCHLORIDE
     Indication: FOETAL EXPOSURE DURING PREGNANCY
     Route: 064

REACTIONS (22)
  - Congenital central nervous system anomaly [Unknown]
  - Deafness [Unknown]
  - Hypotonia neonatal [Unknown]
  - Foetal exposure during pregnancy [Unknown]
  - Motor developmental delay [Unknown]
  - Infection [Unknown]
  - Dermatitis diaper [Unknown]
  - Dacryostenosis acquired [Unknown]
  - Pseudostrabismus [Unknown]
  - Eye infection [Unknown]
  - Conjunctivitis [Unknown]
  - Macrocephaly [Unknown]
  - Gross motor delay [Unknown]
  - Foot deformity [Unknown]
  - Gait disturbance [Unknown]
  - Pyrexia [Unknown]
  - Developmental delay [Unknown]
  - Speech disorder [Unknown]
  - Cough [Unknown]
  - Rhinorrhoea [Unknown]
  - Plagiocephaly [Unknown]
  - Cerebral cyst [Unknown]
